FAERS Safety Report 7771563-3 (Version None)
Quarter: 2011Q3

REPORT INFORMATION
  Report Type: 
  Country: None (occurrence: None)
  Receive Date: 20110922
  Receipt Date: 20101202
  Transmission Date: 20111222
  Serious: No
  Sender: FDA-Public Use
  Company Number: US-ASTRAZENECA-2009UW02689

PATIENT
  Age: 25 Year
  Sex: Female
  Weight: 138.3 kg

DRUGS (20)
  1. SEROQUEL [Suspect]
     Route: 048
     Dates: start: 20020125, end: 20090201
  2. SEROQUEL [Suspect]
     Dosage: PT WEANING OF SEROQUEL DOWN TO 1OO MG QD
     Route: 048
     Dates: start: 20080828
  3. PROZAC [Concomitant]
     Dates: start: 20020101
  4. PROZAC [Concomitant]
     Route: 048
     Dates: start: 20080828
  5. PROPOXYPHENE NAPSYLATE [Concomitant]
     Dates: start: 20090323
  6. FLUOXETINE [Concomitant]
     Dosage: 40 MG TO 80 MG
     Dates: start: 20020104
  7. SEROQUEL [Suspect]
     Indication: BIPOLAR DISORDER
     Dosage: TAKE 1 AM AND 1 PM AND1 BEDTIME
     Route: 048
     Dates: start: 20020104
  8. NEXIUM [Concomitant]
     Dates: start: 20090101
  9. DARVOCET [Concomitant]
  10. RESTORIL [Concomitant]
     Dates: start: 20090101
  11. PROMETHAZINE [Concomitant]
  12. ZYRTEC [Concomitant]
  13. ABILIFY [Concomitant]
     Dates: start: 20090201
  14. NEXIUM [Concomitant]
     Route: 048
     Dates: start: 20080828
  15. SEROQUEL [Suspect]
     Route: 048
     Dates: start: 20020104
  16. FLEXERIL [Concomitant]
     Route: 048
     Dates: start: 20080828
  17. ABILIFY [Concomitant]
     Dates: start: 20080828
  18. WELLBUTRIN [Concomitant]
     Dates: start: 20090101
  19. WELLBUTRIN [Concomitant]
     Dosage: 150 MG TO 300 MG
     Route: 048
     Dates: start: 20080828
  20. TRAZODONE HYDROCHLORIDE [Concomitant]

REACTIONS (6)
  - WEIGHT INCREASED [None]
  - GASTROOESOPHAGEAL REFLUX DISEASE [None]
  - AMNESIA [None]
  - HYPOAESTHESIA [None]
  - RADICULOPATHY [None]
  - INSOMNIA [None]
